FAERS Safety Report 6493575-2 (Version None)
Quarter: 2009Q4

REPORT INFORMATION
  Report Type: 
  Country: None (occurrence: None)
  Receive Date: 20091209
  Receipt Date: 20091126
  Transmission Date: 20100525
  Serious: Yes (Other)
  Sender: FDA-Public Use
  Company Number: ADR52402009

PATIENT
  Age: 49 Year
  Sex: Female

DRUGS (2)
  1. CITALOPRAM, 10 MG (MFR: UNKNOWN) [Suspect]
     Indication: DEPRESSION
     Dosage: 10 MG ORAL
     Route: 048
     Dates: start: 20090501
  2. OMEPRAZOLE [Concomitant]

REACTIONS (10)
  - ALOPECIA [None]
  - DIZZINESS [None]
  - DRUG WITHDRAWAL SYNDROME [None]
  - FATIGUE [None]
  - FEELING DRUNK [None]
  - MALAISE [None]
  - NAUSEA [None]
  - PALPITATIONS [None]
  - STRESS [None]
  - VISUAL FIELD DEFECT [None]
